FAERS Safety Report 13654904 (Version 1)
Quarter: 2017Q2

REPORT INFORMATION
  Report Type: Spontaneous
  Country: US (occurrence: US)
  Receive Date: 20170615
  Receipt Date: 20170615
  Transmission Date: 20170830
  Serious: No
  Sender: FDA-Public Use
  Company Number: US-AUROBINDO-AUR-APL-2016-14226

PATIENT
  Age: 6 Year
  Sex: Female

DRUGS (1)
  1. CEFADROXIL FOR ORAL SUSPENSION USP 500 MG/5 ML [Suspect]
     Active Substance: CEFADROXIL
     Indication: PHARYNGITIS STREPTOCOCCAL
     Dosage: TWO DOSES A DAY
     Route: 065
     Dates: start: 20161110

REACTIONS (1)
  - Incorrect product storage [Unknown]
